FAERS Safety Report 8595855-3 (Version None)
Quarter: 2012Q3

REPORT INFORMATION
  Report Type: 
  Country: None (occurrence: None)
  Receive Date: 20120815
  Receipt Date: 20120809
  Transmission Date: 20120928
  Serious: Yes (Other)
  Sender: FDA-Public Use
  Company Number: FR-PFIZER INC-2012190961

PATIENT
  Sex: Male

DRUGS (3)
  1. PERINDOPRIL [Concomitant]
     Dosage: UNK
  2. CORDARONE [Suspect]
     Indication: ATRIAL FIBRILLATION
     Dosage: 200 MG, DAILY
     Route: 048
     Dates: start: 20100101
  3. FLECAINIDE ACETATE [Concomitant]
     Dosage: UNK

REACTIONS (5)
  - WALKING DISABILITY [None]
  - HYPOAESTHESIA [None]
  - HYPOTHYROIDISM [None]
  - SKIN DISCOLOURATION [None]
  - TREMOR [None]
